FAERS Safety Report 7038355-4 (Version None)
Quarter: 2010Q4

REPORT INFORMATION
  Report Type: 
  Country: None (occurrence: None)
  Receive Date: 20101011
  Receipt Date: 20100114
  Transmission Date: 20110411
  Serious: No
  Sender: FDA-Public Use
  Company Number: US-PFIZER INC-2010006895

PATIENT
  Sex: Female
  Weight: 22.7 kg

DRUGS (7)
  1. NEURONTIN [Suspect]
     Indication: PAIN IN EXTREMITY
     Dosage: 2 ML, 2X/DAY
     Route: 048
     Dates: start: 20091101
  2. ALLEGRA [Concomitant]
     Dosage: UNK
  3. LAMICTAL [Concomitant]
     Dosage: UNK
  4. BACLOFEN [Concomitant]
     Dosage: UNK
  5. MULTI-VITAMINS [Concomitant]
     Dosage: UNK
  6. PULMICORT [Concomitant]
     Dosage: UNK
  7. XOPENEX [Concomitant]
     Dosage: UNK

REACTIONS (2)
  - ABDOMINAL PAIN UPPER [None]
  - EATING DISORDER [None]
